FAERS Safety Report 5413978-4 (Version None)
Quarter: 2007Q3

REPORT INFORMATION
  Report Type: 
  Country: None (occurrence: None)
  Receive Date: 20070814
  Receipt Date: 20070802
  Transmission Date: 20080115
  Serious: No
  Sender: FDA-Public Use
  Company Number: US-ELI_LILLY_AND_COMPANY-US200706004821

PATIENT
  Age: 78 Year
  Sex: Female

DRUGS (6)
  1. FORTEO [Suspect]
     Indication: OSTEOPOROSIS
     Dosage: 20 UG, UNK
     Dates: start: 20070501
  2. TEMAZEPAM [Concomitant]
     Dosage: 30 MG, AS NEEDED
  3. VERAPAMIL [Concomitant]
     Dosage: 240 MG, DAILY (1/D)
  4. LEVOTHYROXINE SODIUM [Concomitant]
     Dosage: 0.112 MG, DAILY (1/D)
  5. OMEPRAZOLE [Concomitant]
     Dosage: 20 MG, DAILY (1/D)
  6. ZOCOR [Concomitant]
     Dosage: 40 MG, DAILY (1/D)

REACTIONS (4)
  - BACK PAIN [None]
  - BALANCE DISORDER [None]
  - DYSPNOEA [None]
  - FALL [None]
